FAERS Safety Report 9696001 (Version 1)
Quarter: 2013Q4

REPORT INFORMATION
  Report Type: Spontaneous
  Country: DK (occurrence: DK)
  Receive Date: 20131119
  Receipt Date: 20131119
  Transmission Date: 20140711
  Serious: Yes (Hospitalization)
  Sender: FDA-Public Use
  Company Number: DK-ASTRAZENECA-2013SE82817

PATIENT
  Age: 11780 Day
  Sex: Female
  Weight: 85 kg

DRUGS (1)
  1. SELO-ZOK [Suspect]
     Indication: HYPERTENSION
     Route: 048
     Dates: start: 20131014

REACTIONS (1)
  - Cough [Not Recovered/Not Resolved]
